FAERS Safety Report 5423976-2 (Version None)
Quarter: 2007Q3

REPORT INFORMATION
  Report Type: 
  Country: None (occurrence: None)
  Receive Date: 20070727
  Receipt Date: 20060921
  Transmission Date: 20080115
  Serious: Yes (Hospitalization)
  Sender: FDA-Public Use
  Company Number: THYM-11031

PATIENT
  Age: 70 Year
  Sex: Male
  Weight: 86 kg

DRUGS (10)
  1. THYMOGLOBULIN [Suspect]
     Indication: HEART TRANSPLANT
     Dosage: 125 MG QD IV
     Route: 042
     Dates: start: 20060804, end: 20060806
  2. THYMOGLOBULIN [Suspect]
     Indication: HEART TRANSPLANT
     Dosage: 75 MG QD IV
     Route: 042
     Dates: start: 20060807, end: 20060807
  3. THYMOGLOBULIN [Suspect]
     Indication: HEART TRANSPLANT
     Dosage: 50 MG QD IV
     Route: 042
     Dates: start: 20060808, end: 20060808
  4. THYMOGLOBULIN [Suspect]
     Indication: HEART TRANSPLANT
     Dosage: 75 MG QD IV
     Route: 042
     Dates: start: 20060809, end: 20060810
  5. CYCLOSPORINE [Concomitant]
  6. CELLCEPT [Concomitant]
  7. SOLU-MEDROL [Concomitant]
  8. PREDNISONE [Concomitant]
  9. MILRINONE [Concomitant]
  10. LASIX [Concomitant]

REACTIONS (2)
  - LEUKOPENIA [None]
  - THROMBOCYTOPENIA [None]
